FAERS Safety Report 17692749 (Version 2)
Quarter: 2020Q2

REPORT INFORMATION
  Report Type: Spontaneous
  Country: JP (occurrence: JP)
  Receive Date: 20200422
  Receipt Date: 20200526
  Transmission Date: 20200714
  Serious: Yes (Other)
  Sender: FDA-Public Use
  Company Number: JP-PFIZER INC-2020157289

PATIENT
  Age: 71 Year
  Sex: Male

DRUGS (7)
  1. LYRICA [Suspect]
     Active Substance: PREGABALIN
     Indication: HYPOAESTHESIA
     Dosage: 25 MG, 3X/DAY
     Route: 048
     Dates: start: 20200416
  2. JARDIANCE [Concomitant]
     Active Substance: EMPAGLIFLOZIN
     Dosage: 10 MG, 1X/DAY
     Route: 048
  3. PREDNISOLONE. [Concomitant]
     Active Substance: PREDNISOLONE
     Dosage: 5 MG, 2X/DAY
     Route: 048
  4. BAYASPIRIN [Suspect]
     Active Substance: ASPIRIN
     Dosage: 100 MG, 1X/DAY
     Route: 048
  5. RYZODEG 70/30 [Concomitant]
     Active Substance: INSULIN ASPART\INSULIN DEGLUDEC
     Dosage: UNK
  6. TRULICITY [Concomitant]
     Active Substance: DULAGLUTIDE
     Dosage: UNK
  7. MYTELASE [Concomitant]
     Active Substance: AMBENONIUM CHLORIDE
     Dosage: 10 MG, 2X/DAY
     Route: 048

REACTIONS (2)
  - Melaena [Recovered/Resolved]
  - Diarrhoea [Recovered/Resolved]

NARRATIVE: CASE EVENT DATE: 20200417
